FAERS Safety Report 10163386 (Version 1)
Quarter: 2014Q2

REPORT INFORMATION
  Report Type: Report from Study
  Country: JP (occurrence: JP)
  Receive Date: 20140509
  Receipt Date: 20140509
  Transmission Date: 20141212
  Serious: Yes (Death, Other)
  Sender: FDA-Public Use
  Company Number: JP-BAXTER-2014BAX022011

PATIENT
  Age: 58 Year
  Sex: Female

DRUGS (15)
  1. ENDOXAN 1G [Suspect]
     Indication: BONE MARROW CONDITIONING REGIMEN
     Dosage: DAYS -6 TO -3
     Route: 042
  2. FLUDARABINE [Suspect]
     Indication: BONE MARROW CONDITIONING REGIMEN
     Dosage: DAYS -6 TO -3
     Route: 042
  3. THYMOGLOBULIN [Suspect]
     Indication: BONE MARROW CONDITIONING REGIMEN
     Dosage: DAYS -5 TO -2
     Route: 042
  4. METHOTREXATE [Suspect]
     Indication: GRAFT VERSUS HOST DISEASE
     Dosage: 10-15 MG/M2 ON DAY 1
     Route: 065
  5. METHOTREXATE [Suspect]
     Dosage: 7-10 MG/M2 ON DAYS 3 AND 6
     Route: 065
  6. LEVOFLOXACIN [Suspect]
     Indication: PROPHYLAXIS
     Route: 065
  7. LEVOFLOXACIN [Suspect]
     Indication: PNEUMOCYSTIS JIROVECII INFECTION
  8. FLUCONAZOLE [Suspect]
     Indication: PROPHYLAXIS
     Route: 065
  9. FLUCONAZOLE [Suspect]
     Indication: PNEUMOCYSTIS JIROVECII INFECTION
  10. ITRACONAZOLE [Suspect]
     Indication: PROPHYLAXIS
     Route: 065
  11. ITRACONAZOLE [Suspect]
     Indication: PNEUMOCYSTIS JIROVECII INFECTION
  12. SULFAMETHOXAZOLE/TRIMETHOPRIM [Suspect]
     Indication: PROPHYLAXIS
     Route: 065
  13. SULFAMETHOXAZOLE/TRIMETHOPRIM [Suspect]
     Indication: PNEUMOCYSTIS JIROVECII INFECTION
  14. ACYCLOVIR [Suspect]
     Indication: HERPES SIMPLEX
     Route: 065
  15. ACYCLOVIR [Suspect]
     Indication: HERPES ZOSTER

REACTIONS (3)
  - Acute graft versus host disease [Unknown]
  - Hepatic failure [Fatal]
  - Adenoviral hepatitis [Fatal]
